FAERS Safety Report 14909301 (Version 1)
Quarter: 2018Q2

REPORT INFORMATION
  Report Type: Spontaneous
  Country: FI (occurrence: FI)
  Receive Date: 20180517
  Receipt Date: 20180517
  Transmission Date: 20180711
  Serious: Yes (Other)
  Sender: FDA-Public Use
  Company Number: FI-ELI_LILLY_AND_COMPANY-FI201805003378

PATIENT
  Sex: Female

DRUGS (3)
  1. ZYPADHERA [Suspect]
     Active Substance: OLANZAPINE PAMOATE
     Dosage: 210 MG, 2/M
     Route: 030
     Dates: end: 20170911
  2. ZYPADHERA [Suspect]
     Active Substance: OLANZAPINE PAMOATE
     Dosage: 150 MG, 2/M
     Route: 030
     Dates: start: 20170911
  3. ZYPADHERA [Suspect]
     Active Substance: OLANZAPINE PAMOATE
     Indication: DELUSIONAL DISORDER, UNSPECIFIED TYPE
     Dosage: 300 MG, 2/M
     Route: 030

REACTIONS (8)
  - Back pain [Unknown]
  - Blood pressure decreased [Unknown]
  - Fatigue [Unknown]
  - Restlessness [Unknown]
  - Somnolence [Unknown]
  - Blood pressure increased [Unknown]
  - Disorganised speech [Unknown]
  - Post-injection delirium sedation syndrome [Unknown]

NARRATIVE: CASE EVENT DATE: 20080507
